FAERS Safety Report 20459971 (Version 3)
Quarter: 2022Q1

REPORT INFORMATION
  Report Type: Report from Study
  Country: FR (occurrence: None)
  Receive Date: 20220211
  Receipt Date: 20220308
  Transmission Date: 20220423
  Serious: Yes (Hospitalization)
  Sender: FDA-Public Use
  Company Number: FR-ROCHE-3015765

PATIENT
  Age: 34 Year
  Sex: Male
  Weight: 65 kg

DRUGS (12)
  1. ATEZOLIZUMAB [Suspect]
     Active Substance: ATEZOLIZUMAB
     Indication: Soft tissue sarcoma
     Route: 041
     Dates: start: 20220118, end: 20220118
  2. ATEZOLIZUMAB [Suspect]
     Active Substance: ATEZOLIZUMAB
     Route: 065
     Dates: start: 20220201, end: 20220201
  3. COBIMETINIB [Suspect]
     Active Substance: COBIMETINIB
     Indication: Soft tissue sarcoma
     Route: 048
     Dates: start: 20220118, end: 20220126
  4. COBIMETINIB [Suspect]
     Active Substance: COBIMETINIB
     Route: 048
     Dates: start: 20220202, end: 20220207
  5. COBIMETINIB [Suspect]
     Active Substance: COBIMETINIB
     Dosage: 60 MILLIGRAM EVERY 1 DAY(S) 21 DAYS ON / 7 DAYS OFF
     Route: 048
     Dates: start: 20220222
  6. MORPHINE [Concomitant]
     Active Substance: MORPHINE
     Indication: Pain
     Route: 048
     Dates: start: 202201
  7. PREGABALIN [Concomitant]
     Active Substance: PREGABALIN
     Route: 048
  8. PANTOPRAZOLE [Concomitant]
     Active Substance: PANTOPRAZOLE
     Route: 048
  9. POLYETHYLENE GLYCOLS [Concomitant]
     Active Substance: POLYETHYLENE GLYCOLS
     Indication: Prophylaxis
  10. NALOXEGOL [Concomitant]
     Active Substance: NALOXEGOL
     Indication: Prophylaxis
     Route: 048
  11. PREDNISONE [Concomitant]
     Active Substance: PREDNISONE
     Dosage: 120 MG DAILY FOR 72 HOURS,, 60 MG DAILY ONE WEEK, THEN 40 MG ONE WEEK AND 20 MG DAILY NEXT WEEK.
     Dates: start: 20220216
  12. BISOPROLOL [Concomitant]
     Active Substance: BISOPROLOL
     Route: 065

REACTIONS (1)
  - Myocarditis [Not Recovered/Not Resolved]

NARRATIVE: CASE EVENT DATE: 20220126
